FAERS Safety Report 4644297-1 (Version None)
Quarter: 2005Q2

REPORT INFORMATION
  Report Type: 
  Country: None (occurrence: None)
  Receive Date: 20050331
  Receipt Date: 20041229
  Transmission Date: 20051028
  Serious: No
  Sender: FDA-Public Use
  Company Number: 05P-163-0285153-00

PATIENT
  Age: 64 Year
  Sex: Female
  Weight: 64.8644 kg

DRUGS (9)
  1. HUMIRA [Suspect]
     Indication: RHEUMATOID ARTHRITIS
     Dosage: 40 MG, 1 IN 2 WK, SUBCUTANEOUS
     Route: 058
     Dates: start: 20041201, end: 20050101
  2. CLARINEX [Concomitant]
  3. FLUTICASONE PROPIONATE [Concomitant]
  4. METHOTREXATE [Concomitant]
  5. PREDNISONE TAB [Concomitant]
  6. SULFASALAZINE [Concomitant]
  7. CYPROHEPTADINE HYDROCHLORIDE [Concomitant]
  8. CELECOXIB [Concomitant]
  9. ESOMEPRAZOLE [Concomitant]

REACTIONS (1)
  - SPUTUM DISCOLOURED [None]
